FAERS Safety Report 5693041-8 (Version None)
Quarter: 2008Q2

REPORT INFORMATION
  Report Type: 
  Country: None (occurrence: None)
  Receive Date: 20080403
  Receipt Date: 20080303
  Transmission Date: 20081010
  Serious: No
  Sender: FDA-Public Use
  Company Number: US-BAYER-200815967NA

PATIENT
  Age: 54 Year
  Sex: Male

DRUGS (3)
  1. LEVITRA [Suspect]
     Indication: ERECTILE DYSFUNCTION
     Dosage: TOTAL DAILY DOSE: 20 MG
     Route: 048
     Dates: start: 20080302, end: 20080302
  2. LEVITRA [Suspect]
     Dosage: TOTAL DAILY DOSE: 15 MG
     Route: 048
  3. LEVITRA [Suspect]
     Dosage: TOTAL DAILY DOSE: 5 MG
     Route: 048
     Dates: start: 20061001

REACTIONS (1)
  - ERECTILE DYSFUNCTION [None]
